FAERS Safety Report 23172734 (Version 1)
Quarter: 2023Q4

REPORT INFORMATION
  Report Type: Report from Study
  Country: PL (occurrence: PL)
  Receive Date: 20231110
  Receipt Date: 20231110
  Transmission Date: 20240110
  Serious: Yes (Hospitalization)
  Sender: FDA-Public Use
  Company Number: PL-Eisai Medical Research-EC-2022-125589

PATIENT
  Age: 65 Year
  Sex: Male
  Weight: 70 kg

DRUGS (21)
  1. LENVATINIB [Suspect]
     Active Substance: LENVATINIB
     Indication: Clear cell renal cell carcinoma
     Dosage: STARTING DOSE AT 20 MILLIGRAM (FLUCTUATED DOSE)
     Route: 048
     Dates: start: 20220324, end: 20221004
  2. PEMBROLIZUMAB [Suspect]
     Active Substance: PEMBROLIZUMAB
     Indication: Clear cell renal cell carcinoma
     Dosage: QUAVONLIMAB 25 MG + PEMBROLIZUMAB 400 MG
     Route: 041
     Dates: start: 20220324, end: 20220908
  3. AMLODIPINE BESYLATE\PERINDOPRIL ARGININE [Concomitant]
     Active Substance: AMLODIPINE BESYLATE\PERINDOPRIL ARGININE
     Dates: start: 20220729
  4. BIBLOC [BISOPROLOL FUMARATE] [Concomitant]
     Dates: start: 202001
  5. MAGNE B6 [Concomitant]
     Active Substance: MAGNESIUM\PYRIDOXINE
     Dates: start: 202001
  6. SINGULAIR [Concomitant]
     Active Substance: MONTELUKAST SODIUM
     Dates: start: 200701
  7. FLUTICASONE PROPIONATE\SALMETEROL XINAFOATE [Concomitant]
     Active Substance: FLUTICASONE PROPIONATE\SALMETEROL XINAFOATE
     Dates: start: 200701
  8. ADATAM [TAMSULOSIN HYDROCHLORIDE] [Concomitant]
     Dates: start: 20220424
  9. CAPTOPRIL [Concomitant]
     Active Substance: CAPTOPRIL
     Dates: start: 202201
  10. LOPERAMIDE [Concomitant]
     Active Substance: LOPERAMIDE
     Dates: start: 20220622
  11. PANTOPRAZOLE [Concomitant]
     Active Substance: PANTOPRAZOLE
     Dates: start: 20220628
  12. FOLIC ACID [Concomitant]
     Active Substance: FOLIC ACID
     Dates: start: 20220801
  13. PANTOPRAZOLE SODIUM [Concomitant]
     Active Substance: PANTOPRAZOLE SODIUM
     Dates: start: 20220821
  14. ELIQUIS [Concomitant]
     Active Substance: APIXABAN
     Dates: start: 20220821
  15. ASEMAX [Concomitant]
     Dates: start: 20220826
  16. ESSELIV [Concomitant]
     Dates: start: 20220414
  17. PANCRELIPASE [Concomitant]
     Active Substance: PANCRELIPASE
     Dates: start: 20220607
  18. POTASSIUM CHLORIDE [Concomitant]
     Active Substance: POTASSIUM CHLORIDE
     Dates: start: 200201
  19. ALLOPURINOL [Concomitant]
     Active Substance: ALLOPURINOL
     Dates: start: 201801
  20. FENOTEROL HYDROBROMIDE [Concomitant]
     Active Substance: FENOTEROL HYDROBROMIDE
     Dates: start: 200701
  21. QUAVONLIMAB [Suspect]
     Active Substance: QUAVONLIMAB

REACTIONS (1)
  - Diarrhoea [Recovered/Resolved]

NARRATIVE: CASE EVENT DATE: 20221005
